FAERS Safety Report 8828331 (Version 2)
Quarter: 2013Q2

REPORT INFORMATION
  Report Type: Spontaneous
  Country: US (occurrence: US)
  Receive Date: 20121005
  Receipt Date: 20130513
  Transmission Date: 20140414
  Serious: Yes (Hospitalization, Other)
  Sender: FDA-Public Use
  Company Number: US-TEVA-362547USA

PATIENT
  Age: 49 Year
  Sex: Male

DRUGS (8)
  1. DOXEPIN [Suspect]
     Dosage: 25 MILLIGRAM DAILY;
     Route: 065
  2. SERTRALINE [Suspect]
     Route: 065
  3. ZOLINZA (VORINOSTAT) [Suspect]
     Indication: MYCOSIS FUNGOIDES
     Dosage: 400 MILLIGRAM DAILY;
     Route: 048
  4. HYDROCHLOROTHIAZIDE [Concomitant]
     Dosage: 25 MILLIGRAM DAILY;
     Route: 065
  5. INSULIN SUSPENSION ISOPHANE [Concomitant]
     Route: 065
  6. INSULIN [Concomitant]
     Route: 065
  7. NAPROXEN SODIUM [Concomitant]
     Indication: PAIN
     Dosage: AS NEEDED
     Route: 065
  8. OXYCODONE [Concomitant]
     Indication: PAIN
     Dosage: AS NEEDED
     Route: 065

REACTIONS (5)
  - Electrocardiogram QT prolonged [Recovering/Resolving]
  - Torsade de pointes [Recovered/Resolved]
  - Ventricular tachycardia [Recovered/Resolved]
  - Pericardial effusion [Unknown]
  - Hypokalaemia [Recovered/Resolved]
